FAERS Safety Report 6434991-4 (Version None)
Quarter: 2009Q4

REPORT INFORMATION
  Report Type: 
  Country: None (occurrence: None)
  Receive Date: 20091110
  Receipt Date: 20091028
  Transmission Date: 20100525
  Serious: Yes (Other)
  Sender: FDA-Public Use
  Company Number: PHFR2005GB03713

PATIENT
  Sex: Male

DRUGS (1)
  1. CLOZARIL [Suspect]
     Dosage: 225MG DAILY
     Route: 065
     Dates: start: 19991116

REACTIONS (4)
  - EPILEPSY [None]
  - FACE INJURY [None]
  - FALL [None]
  - SUBDURAL HAEMATOMA [None]
